FAERS Safety Report 9201715 (Version 2)
Quarter: 2013Q2

REPORT INFORMATION
  Report Type: Spontaneous
  Country: US (occurrence: US)
  Receive Date: 20130401
  Receipt Date: 20130503
  Transmission Date: 20140414
  Serious: Yes (Other)
  Sender: FDA-Public Use
  Company Number: US-PFIZER INC-2013103769

PATIENT
  Age: 45 Year
  Sex: Female
  Weight: 77.1 kg

DRUGS (5)
  1. CHANTIX [Suspect]
     Indication: SMOKING CESSATION THERAPY
     Dosage: 0.5 MG, 1X/DAY
     Route: 048
     Dates: start: 201304, end: 201304
  2. CHANTIX [Suspect]
     Dosage: 1 MG, 2X/DAY
     Route: 048
     Dates: start: 201304, end: 201304
  3. CHANTIX [Suspect]
     Dosage: SPLITTING CHANTIX 1MG INTO HALF
     Route: 048
     Dates: start: 201304
  4. LISINOPRIL [Concomitant]
     Indication: HYPERTENSION
     Dosage: UNK
  5. ULTRAM [Concomitant]
     Dosage: UNK

REACTIONS (2)
  - Impaired driving ability [Unknown]
  - Abdominal discomfort [Recovered/Resolved]
